FAERS Safety Report 16916206 (Version 1)
Quarter: 2019Q4

REPORT INFORMATION
  Report Type: Spontaneous
  Country: CA (occurrence: CA)
  Receive Date: 20191014
  Receipt Date: 20191014
  Transmission Date: 20200122
  Serious: Yes (Life-Threatening, Other)
  Sender: FDA-Public Use
  Company Number: CA-TEVA-2019-CA-1121020

PATIENT
  Age: 64 Year
  Sex: Female
  Weight: 79 kg

DRUGS (3)
  1. PACLITAXEL INJECTION [Concomitant]
     Active Substance: PACLITAXEL
  2. CARBOPLATIN. [Suspect]
     Active Substance: CARBOPLATIN
     Indication: OVARIAN CANCER
     Route: 040
  3. CARBOPLATIN. [Suspect]
     Active Substance: CARBOPLATIN
     Route: 040

REACTIONS (6)
  - Cough [Unknown]
  - Hypotension [Unknown]
  - Dyspnoea [Unknown]
  - Hypoxia [Unknown]
  - Chest discomfort [Unknown]
  - Flushing [Unknown]
